FAERS Safety Report 9526139 (Version 2)
Quarter: 2013Q4

REPORT INFORMATION
  Report Type: Report from Study
  Country: US (occurrence: US)
  Receive Date: 20130916
  Receipt Date: 20131002
  Transmission Date: 20140711
  Serious: Yes (Other)
  Sender: FDA-Public Use
  Company Number: US-ACTELION-A-NJ2013-88365

PATIENT
  Age: 84 Year
  Sex: Female

DRUGS (2)
  1. TRACLEER [Suspect]
     Indication: PULMONARY ARTERIAL HYPERTENSION
     Dosage: UNK
     Route: 048
     Dates: start: 2008
  2. OXYGEN [Concomitant]
     Dosage: UNK

REACTIONS (3)
  - Basal cell carcinoma [Recovered/Resolved]
  - Fall [Recovered/Resolved]
  - Laceration [Recovering/Resolving]
